FAERS Safety Report 12964554 (Version 2)
Quarter: 2017Q1

REPORT INFORMATION
  Report Type: Spontaneous
  Country: AR (occurrence: AR)
  Receive Date: 20161122
  Receipt Date: 20170117
  Transmission Date: 20170428
  Serious: Yes (Hospitalization, Other)
  Sender: FDA-Public Use
  Company Number: AR-PFIZER INC-2016509296

PATIENT
  Age: 71 Year
  Sex: Male

DRUGS (2)
  1. SUTENT [Suspect]
     Active Substance: SUNITINIB MALATE
     Indication: METASTATIC RENAL CELL CARCINOMA
     Dosage: UNK UNK, CYCLIC (SCHEME 2/1, 14 DAYS ON, 7 DAYS OFF)
     Dates: start: 20160810, end: 20161010
  2. SUTENT [Suspect]
     Active Substance: SUNITINIB MALATE
     Dosage: UNK, CYCLIC (SCHEME 2/1, 14 DAYS ON, 7 DAYS OFF)
     Dates: start: 20160810, end: 20161010

REACTIONS (3)
  - Asthenia [Recovering/Resolving]
  - Pneumonia [Recovering/Resolving]
  - Abasia [Recovering/Resolving]

NARRATIVE: CASE EVENT DATE: 201610
